FAERS Safety Report 20306484 (Version 3)
Quarter: 2022Q1

REPORT INFORMATION
  Report Type: Report from Study
  Country: BR (occurrence: BR)
  Receive Date: 20220106
  Receipt Date: 20220314
  Transmission Date: 20220423
  Serious: Yes (Death, Hospitalization, Other)
  Sender: FDA-Public Use
  Company Number: BR-BoehringerIngelheim-2021-BI-145543

PATIENT
  Age: 72 Year
  Sex: Male
  Weight: 80 kg

DRUGS (2)
  1. OFEV [Suspect]
     Active Substance: NINTEDANIB
     Indication: Pulmonary fibrosis
     Dosage: 2 CAPSULES
     Route: 048
     Dates: start: 20210618, end: 20210723
  2. OFEV [Suspect]
     Active Substance: NINTEDANIB
     Route: 048
     Dates: end: 20211214

REACTIONS (11)
  - Respiratory arrest [Fatal]
  - Cardiac failure [Fatal]
  - Pulmonary fibrosis [Fatal]
  - Gastric disorder [Recovering/Resolving]
  - Vomiting [Recovering/Resolving]
  - Respiratory failure [Unknown]
  - Swelling [Not Recovered/Not Resolved]
  - Cardiac disorder [Not Recovered/Not Resolved]
  - Hallucination [Unknown]
  - Loss of consciousness [Not Recovered/Not Resolved]
  - Insomnia [Not Recovered/Not Resolved]

NARRATIVE: CASE EVENT DATE: 20210618
